FAERS Safety Report 26025426 (Version 1)
Quarter: 2025Q4

REPORT INFORMATION
  Report Type: Spontaneous
  Country: GB (occurrence: GB)
  Receive Date: 20251111
  Receipt Date: 20251111
  Transmission Date: 20260118
  Serious: Yes (Disabling, Other)
  Sender: CIPLA
  Company Number: GB-MHRA-37482255

PATIENT

DRUGS (1)
  1. DAPAGLIFLOZIN [Suspect]
     Active Substance: DAPAGLIFLOZIN
     Indication: Product used for unknown indication
     Dosage: 5 MILLIGRAM, UNK
     Route: 065
     Dates: end: 20251015

REACTIONS (4)
  - Arthralgia [Not Recovered/Not Resolved]
  - Vulvovaginal swelling [Unknown]
  - Candida infection [Recovering/Resolving]
  - Back pain [Not Recovered/Not Resolved]
